FAERS Safety Report 7714187-6 (Version None)
Quarter: 2011Q3

REPORT INFORMATION
  Report Type: 
  Country: None (occurrence: None)
  Receive Date: 20110829
  Receipt Date: 20110818
  Transmission Date: 20111222
  Serious: Yes (Death)
  Sender: FDA-Public Use
  Company Number: US-BIOGENIDEC-2011BI031611

PATIENT
  Sex: Female

DRUGS (3)
  1. AVONEX [Suspect]
     Indication: MULTIPLE SCLEROSIS
     Route: 030
     Dates: start: 20061117
  2. AVONEX [Suspect]
     Route: 030
     Dates: start: 20050805, end: 20060302
  3. AVONEX [Suspect]
     Route: 030
     Dates: start: 20010525, end: 20050501

REACTIONS (1)
  - DEATH [None]
